FAERS Safety Report 4293869-5 (Version None)
Quarter: 2004Q1

REPORT INFORMATION
  Report Type: 
  Country: None (occurrence: None)
  Receive Date: 20040210
  Receipt Date: 20040202
  Transmission Date: 20041129
  Serious: No
  Sender: FDA-Public Use
  Company Number: 2004UW01930

PATIENT
  Age: 71 Year
  Sex: Male
  Weight: 83.4619 kg

DRUGS (2)
  1. NEXIUM [Suspect]
     Indication: GASTROOESOPHAGEAL REFLUX DISEASE
     Dosage: 40 MG PO
     Route: 048
     Dates: start: 20000501
  2. PHENOBARBITAL TAB [Concomitant]

REACTIONS (5)
  - CHROMATURIA [None]
  - CYSTITIS [None]
  - DRUG EFFECT DECREASED [None]
  - MYOCARDIAL INFARCTION [None]
  - TRANSIENT ISCHAEMIC ATTACK [None]
